FAERS Safety Report 8096893-X (Version None)
Quarter: 2012Q1

REPORT INFORMATION
  Report Type: 
  Country: None (occurrence: None)
  Receive Date: 20120129
  Receipt Date: 20111107
  Transmission Date: 20120608
  Serious: No
  Sender: FDA-Public Use
  Company Number: US-ABBOTT-11P-163-0872244-00

PATIENT
  Sex: Female
  Weight: 82.628 kg

DRUGS (7)
  1. NORVASC [Concomitant]
     Indication: HYPERTENSION
  2. HUMIRA [Suspect]
     Indication: RHEUMATOID ARTHRITIS
     Dates: start: 20111001
  3. CRESTOR [Concomitant]
     Indication: BLOOD CHOLESTEROL INCREASED
  4. MULTI-VITAMIN [Concomitant]
     Indication: ROUTINE HEALTH MAINTENANCE
  5. CELEXA [Concomitant]
     Indication: DEPRESSION
  6. ARAVA [Concomitant]
     Indication: RHEUMATOID ARTHRITIS
  7. CALCIUM [Concomitant]
     Indication: MINERAL SUPPLEMENTATION

REACTIONS (3)
  - DIZZINESS [None]
  - MUSCLE SPASMS [None]
  - EAR INFECTION [None]
